FAERS Safety Report 16096947 (Version 2)
Quarter: 2019Q2

REPORT INFORMATION
  Report Type: Spontaneous
  Country: JP (occurrence: JP)
  Receive Date: 20190320
  Receipt Date: 20190516
  Transmission Date: 20190711
  Serious: Yes (Other)
  Sender: FDA-Public Use
  Company Number: JP-PFIZER INC-2019114514

PATIENT
  Age: 34 Year
  Sex: Male
  Weight: 76 kg

DRUGS (31)
  1. LYRICA [Suspect]
     Active Substance: PREGABALIN
     Dosage: UNK
     Route: 048
     Dates: start: 20181102, end: 20181109
  2. GASTROZEPIN [Suspect]
     Active Substance: PIRENZEPINE HYDROCHLORIDE
     Dosage: UNK
     Route: 048
     Dates: start: 20181031, end: 20181109
  3. FENTANYL. [Concomitant]
     Active Substance: FENTANYL
     Dosage: UNK
     Dates: start: 20181023, end: 20181101
  4. CEFTRIAXONE. [Concomitant]
     Active Substance: CEFTRIAXONE
     Dosage: UNK
     Dates: start: 20181024, end: 20181031
  5. MAGMITT [Concomitant]
     Active Substance: MAGNESIUM OXIDE
     Dosage: UNK
     Route: 048
     Dates: start: 20181101, end: 20181206
  6. RISPERIDONE. [Concomitant]
     Active Substance: RISPERIDONE
     Dosage: UNK
     Dates: start: 20181102, end: 20181104
  7. TEICOPLANIN [Concomitant]
     Active Substance: TEICOPLANIN
     Dosage: UNK
     Dates: start: 20181109, end: 20181121
  8. TRANEXAMIC ACID. [Concomitant]
     Active Substance: TRANEXAMIC ACID
     Dosage: UNK
     Dates: start: 20181023, end: 20181024
  9. CEFTAZIDIME. [Concomitant]
     Active Substance: CEFTAZIDIME
     Dosage: UNK
     Dates: start: 20181205, end: 20181206
  10. CELECOX [Suspect]
     Active Substance: CELECOXIB
     Dosage: UNK
     Route: 048
     Dates: start: 20181103, end: 20181109
  11. FAMOTIDINE. [Concomitant]
     Active Substance: FAMOTIDINE
     Dosage: UNK
     Route: 048
     Dates: start: 20181108, end: 20181204
  12. ROPION [Concomitant]
     Active Substance: FLURBIPROFEN AXETIL
     Indication: ANALGESIC THERAPY
     Dosage: UNK
     Dates: start: 20181130, end: 20181204
  13. SILECE [Concomitant]
     Active Substance: FLUNITRAZEPAM
     Dosage: UNK
     Dates: start: 20181130, end: 20181203
  14. DAIKENCHUTO [Suspect]
     Active Substance: HERBALS
     Dosage: UNK
     Route: 048
     Dates: start: 20181026, end: 20181109
  15. TAKECAB [Suspect]
     Active Substance: VONOPRAZAN FUMURATE
     Dosage: UNK
     Route: 048
     Dates: start: 20181103, end: 20181109
  16. SOSEGON [PENTAZOCINE HYDROCHLORIDE] [Concomitant]
     Dosage: UNK
     Dates: start: 20181023, end: 20181023
  17. ATARAX-P [HYDROXYZINE EMBONATE] [Concomitant]
     Dosage: UNK
     Dates: start: 20181023, end: 20181023
  18. ZYVOX [Suspect]
     Active Substance: LINEZOLID
     Indication: PNEUMONIA STAPHYLOCOCCAL
     Dosage: 600 MG, 2X/DAY
     Dates: start: 20181106, end: 20181109
  19. TAZOPIPE [Suspect]
     Active Substance: PIPERACILLIN SODIUM\TAZOBACTAM SODIUM
     Indication: URINARY TRACT INFECTION
     Dosage: 4.5 G, 4X/DAY
     Dates: start: 20181129, end: 20181205
  20. PANTETHINE [Concomitant]
     Active Substance: PANTETHINE
     Dosage: UNK
     Route: 048
     Dates: start: 20181101, end: 20181206
  21. CEFMETAZOLE [Concomitant]
     Active Substance: CEFMETAZOLE
     Dosage: UNK
     Dates: start: 20181114, end: 20181121
  22. PROPOFOL. [Suspect]
     Active Substance: PROPOFOL
     Dosage: UNK
     Dates: start: 20181023, end: 20181109
  23. ESLAX [Concomitant]
     Active Substance: ROCURONIUM BROMIDE
     Dosage: UNK
     Dates: start: 20181023, end: 20181023
  24. PRECEDEX [Concomitant]
     Active Substance: DEXMEDETOMIDINE HYDROCHLORIDE
     Dosage: UNK
     Dates: start: 20181031, end: 20181113
  25. CARBAZOCHROME SODIUM SULFONATE [Concomitant]
     Active Substance: CARBAZOCHROME SODIUM SULFONATE
     Dosage: UNK
     Dates: start: 20181023, end: 20181024
  26. OMEPRAZOLE. [Concomitant]
     Active Substance: OMEPRAZOLE
     Dosage: UNK
     Dates: start: 20181023, end: 20181026
  27. ACETAMINOPHEN. [Concomitant]
     Active Substance: ACETAMINOPHEN
     Indication: ANALGESIC THERAPY
     Dosage: UNK
     Route: 048
     Dates: start: 20181126, end: 20181206
  28. MUCOSAL [ACETYLCYSTEINE] [Concomitant]
     Dosage: UNK
     Route: 048
     Dates: start: 20181107, end: 20181113
  29. HALOPERIDOL. [Concomitant]
     Active Substance: HALOPERIDOL
     Dosage: UNK
     Dates: start: 20181101, end: 20181112
  30. SULBACILLIN [Concomitant]
     Active Substance: AMPICILLIN SODIUM\SULBACTAM SODIUM
     Dosage: UNK
     Dates: start: 20181104, end: 20181106
  31. TAKEPRON [Concomitant]
     Active Substance: LANSOPRAZOLE
     Dosage: UNK
     Dates: start: 20181201, end: 20181203

REACTIONS (1)
  - Hepatic function abnormal [Recovering/Resolving]

NARRATIVE: CASE EVENT DATE: 20181109
